FAERS Safety Report 7424505-4 (Version None)
Quarter: 2011Q2

REPORT INFORMATION
  Report Type: 
  Country: None (occurrence: None)
  Receive Date: 20110419
  Receipt Date: 20110414
  Transmission Date: 20111010
  Serious: Yes (Hospitalization)
  Sender: FDA-Public Use
  Company Number: US-B.I. PHARMACEUTICALS,INC./RIDGEFIELD-2011-BP-09285BP

PATIENT
  Sex: Male

DRUGS (14)
  1. FOLIC ACID [Concomitant]
  2. AMARYL [Concomitant]
  3. PRAVASTATIN [Concomitant]
  4. PRADAXA [Suspect]
     Indication: ANTICOAGULANT THERAPY
  5. NASERLON [Concomitant]
  6. PRADAXA [Suspect]
     Indication: CEREBROVASCULAR ACCIDENT PROPHYLAXIS
  7. COZAAR [Concomitant]
  8. INDERAL [Concomitant]
  9. METFORMIN HCL [Concomitant]
  10. LISINOPRIL [Concomitant]
  11. FOSAMAX [Concomitant]
  12. TRICOR [Concomitant]
  13. PRADAXA [Suspect]
     Indication: ANTIPHOSPHOLIPID ANTIBODIES POSITIVE
     Dosage: 300 MG
     Route: 048
     Dates: start: 20110314, end: 20110327
  14. VIT A [Concomitant]

REACTIONS (5)
  - TROPONIN INCREASED [None]
  - CHEST PAIN [None]
  - PAIN IN EXTREMITY [None]
  - DIZZINESS [None]
  - MUSCULOSKELETAL PAIN [None]
